FAERS Safety Report 6289439-X (Version None)
Quarter: 2009Q3

REPORT INFORMATION
  Report Type: 
  Country: None (occurrence: None)
  Receive Date: 20090728
  Receipt Date: 20090728
  Transmission Date: 20100115
  Serious: No
  Sender: FDA-Public Use
  Company Number: None

PATIENT
  Sex: Female
  Weight: 70.3075 kg

DRUGS (1)
  1. NAPRELAN [Suspect]
     Indication: PLANTAR FASCIITIS
     Dosage: 750MG  QD PO
     Route: 048
     Dates: start: 20090615, end: 20090720

REACTIONS (2)
  - MUSCLE SPASMS [None]
  - POLYMENORRHOEA [None]
